FAERS Safety Report 9705997 (Version 3)
Quarter: 2014Q1

REPORT INFORMATION
  Report Type: Spontaneous
  Country: US (occurrence: US)
  Receive Date: 20131122
  Receipt Date: 20140113
  Transmission Date: 20141002
  Serious: Yes (Death)
  Sender: FDA-Public Use
  Company Number: US-B.I. PHARMACEUTICALS,INC./RIDGEFIELD-2013-BI-38594BP

PATIENT
  Age: 58 Year
  Sex: Male
  Weight: 110.67 kg

DRUGS (10)
  1. SPIRIVA [Suspect]
     Indication: CHRONIC OBSTRUCTIVE PULMONARY DISEASE
     Dosage: 18 MCG
     Route: 055
     Dates: start: 20121026
  2. PLAVIX [Concomitant]
  3. SYMBICORT [Concomitant]
  4. LISINOPRIL [Concomitant]
  5. LASIX [Concomitant]
  6. LYRICA [Concomitant]
  7. FLOMAX [Concomitant]
  8. PROVENTIL [Concomitant]
  9. PRAVASTATIN [Concomitant]
  10. GLIPIZIDE [Concomitant]

REACTIONS (1)
  - Death [Fatal]
